FAERS Safety Report 25682893 (Version 2)
Quarter: 2025Q3

REPORT INFORMATION
  Report Type: Spontaneous
  Country: AR (occurrence: AR)
  Receive Date: 20250814
  Receipt Date: 20250822
  Transmission Date: 20251021
  Serious: Yes (Other)
  Sender: MERCK SHARP & DOHME LLC
  Company Number: AR-009507513-2317660

PATIENT
  Age: 25 Year
  Sex: Female
  Weight: 47 kg

DRUGS (2)
  1. PEMBROLIZUMAB [Suspect]
     Active Substance: PEMBROLIZUMAB
     Indication: Cervix neoplasm
     Dosage: FOR 6 CYCLES
     Route: 065
     Dates: start: 20240125, end: 20240610
  2. PEMBROLIZUMAB [Suspect]
     Active Substance: PEMBROLIZUMAB
     Indication: Cervix neoplasm
     Dosage: FOR 6 CYCLES
     Route: 065
     Dates: start: 20240723, end: 20250625

REACTIONS (2)
  - Syringomyelia [Not Recovered/Not Resolved]
  - Paraesthesia [Not Recovered/Not Resolved]

NARRATIVE: CASE EVENT DATE: 20250501
